FAERS Safety Report 25462376 (Version 1)
Quarter: 2025Q2

REPORT INFORMATION
  Report Type: Spontaneous
  Country: US (occurrence: None)
  Receive Date: 20250619
  Receipt Date: 20250619
  Transmission Date: 20250716
  Serious: Yes (unspecified)
  Sender: FDA-CTU
  Company Number: None

PATIENT
  Age: 73 Year
  Sex: Male

DRUGS (4)
  1. VABYSMO [Suspect]
     Active Substance: FARICIMAB-SVOA
     Indication: Age-related macular degeneration
     Route: 047
     Dates: start: 20241212, end: 20250403
  2. EYLEA [Concomitant]
     Active Substance: AFLIBERCEPT
  3. AVASTIN [Concomitant]
     Active Substance: BEVACIZUMAB
  4. BYOOVIZ [Concomitant]
     Active Substance: RANIBIZUMAB-NUNA

REACTIONS (1)
  - Vitritis [None]

NARRATIVE: CASE EVENT DATE: 20250221
